FAERS Safety Report 8953384 (Version 1)
Quarter: 2012Q4

REPORT INFORMATION
  Report Type: 
  Country: US (occurrence: US)
  Receive Date: 20121206
  Receipt Date: 20121206
  Transmission Date: 20130627
  Serious: Yes (Other)
  Sender: FDA-Public Use
  Company Number: US-BAYER-2012-127683

PATIENT
  Age: 67 Year
  Sex: Female
  Weight: 81.63 kg

DRUGS (1)
  1. BETASERON [Suspect]
     Indication: MS
     Dosage: 1 ml, QOD
     Route: 058
     Dates: start: 20020101

REACTIONS (2)
  - Influenza [Unknown]
  - Cystitis [Unknown]
